FAERS Safety Report 9240807 (Version 1)
Quarter: 2013Q2

REPORT INFORMATION
  Report Type: Spontaneous
  Country: US (occurrence: US)
  Receive Date: 20130418
  Receipt Date: 20130418
  Transmission Date: 20140414
  Serious: Yes (Hospitalization)
  Sender: FDA-Public Use
  Company Number: US-SANOFI-AVENTIS-2013SA007226

PATIENT
  Age: 65 Year
  Sex: Male

DRUGS (3)
  1. LOVENOX [Suspect]
  2. ALL OTHER THERAPEUTIC PRODUCTS [Suspect]
     Indication: MYELOFIBROSIS
     Route: 048
  3. HYDROCODONE [Concomitant]

REACTIONS (1)
  - Post procedural haemorrhage [Unknown]
